FAERS Safety Report 12629956 (Version 2)
Quarter: 2016Q3

REPORT INFORMATION
  Report Type: Spontaneous
  Country: JP (occurrence: JP)
  Receive Date: 20160808
  Receipt Date: 20160825
  Transmission Date: 20161109
  Serious: Yes (Other)
  Sender: FDA-Public Use
  Company Number: JP-ELI_LILLY_AND_COMPANY-JP201607013239

PATIENT
  Age: 55 Year
  Sex: Female

DRUGS (2)
  1. CISPLATIN. [Concomitant]
     Active Substance: CISPLATIN
     Indication: BLADDER CANCER STAGE IV
     Dosage: UNK UNK, OTHER
  2. GEMZAR [Suspect]
     Active Substance: GEMCITABINE HYDROCHLORIDE
     Indication: BLADDER CANCER STAGE IV
     Dosage: 1000 MG/M2, OTHER
     Route: 042

REACTIONS (4)
  - Hydronephrosis [Recovering/Resolving]
  - Haematotoxicity [Unknown]
  - Metastases to peritoneum [Unknown]
  - Eastern Cooperative Oncology Group performance status worsened [Unknown]
